FAERS Safety Report 6819904-5 (Version None)
Quarter: 2010Q3

REPORT INFORMATION
  Report Type: 
  Country: None (occurrence: None)
  Receive Date: 20100707
  Receipt Date: 20100618
  Transmission Date: 20110219
  Serious: Yes (Death, Life-Threatening, Hospitalization)
  Sender: FDA-Public Use
  Company Number: US-ROCHE-703965

PATIENT
  Sex: Female
  Weight: 62.1 kg

DRUGS (21)
  1. TOCILIZUMAB [Suspect]
     Indication: RHEUMATOID ARTHRITIS
     Route: 042
     Dates: start: 20091207
  2. TOCILIZUMAB [Suspect]
     Dosage: DOSE: 245 MG
     Route: 042
     Dates: start: 20100204
  3. TOCILIZUMAB [Suspect]
     Dosage: DOSE: 242 MG
     Route: 042
     Dates: start: 20100304
  4. TOCILIZUMAB [Suspect]
     Dosage: DOSE: 240 MG
     Route: 042
     Dates: start: 20100401
  5. TOCILIZUMAB [Suspect]
     Dosage: DOSE: 244 MG
     Route: 042
     Dates: start: 20100504
  6. CALCIUM/VITAMIN D [Concomitant]
     Indication: OSTEOPOROSIS
     Route: 048
     Dates: start: 20010101
  7. VITAMIN B6 [Concomitant]
     Indication: ROUTINE HEALTH MAINTENANCE
     Route: 048
     Dates: start: 19930101
  8. ACETAMINOPHEN [Concomitant]
     Route: 048
     Dates: start: 19950101
  9. NAPROSYN [Concomitant]
     Route: 048
     Dates: start: 20020101
  10. MULTI-VITAMIN [Concomitant]
     Indication: ROUTINE HEALTH MAINTENANCE
     Route: 048
     Dates: start: 20000101
  11. TYLENOL PM [Concomitant]
     Indication: INSOMNIA
     Dosage: FREQUENCY: QHS, PRN
     Dates: start: 20070101
  12. ESOMEPRAZOLE MAGNESIUM [Concomitant]
     Indication: PROPHYLAXIS AGAINST GASTROINTESTINAL ULCER
     Route: 048
     Dates: start: 20080516
  13. FOLIC ACID [Concomitant]
     Route: 048
     Dates: start: 19940101
  14. METAMUCIL-2 [Concomitant]
     Indication: CONSTIPATION
     Dates: start: 20091101
  15. METHOTREXATE [Concomitant]
     Route: 048
     Dates: start: 20020301
  16. DARVOCET-N 100 [Concomitant]
     Dosage: DRUG NAME: DARVOCET-N-100
     Dates: start: 20080119
  17. VICODIN [Concomitant]
     Dosage: DRUG NAME: VICODIN 5/500
     Route: 048
     Dates: start: 20050720
  18. VACCINE NOS [Concomitant]
     Route: 030
     Dates: start: 20100108, end: 20100108
  19. DELSYM [Concomitant]
     Indication: NASOPHARYNGITIS
     Dates: start: 20100307, end: 20100312
  20. ACETAMINOPHEN/ GUAIFENESIN/ NOSCAPINE/ PHENYLEPHRINE HYDROCHLORIDE [Concomitant]
     Dosage: FREQUENCY: Q 4-6 HOURS
     Dates: start: 20100307, end: 20100512
  21. MAGNESIUM CITRATE [Concomitant]
     Dosage: DOSE: 1 BOTTLE X1
     Route: 048
     Dates: start: 20100509, end: 20100509

REACTIONS (3)
  - CEREBROVASCULAR ACCIDENT [None]
  - LARGE INTESTINE PERFORATION [None]
  - PELVIC ABSCESS [None]
